FAERS Safety Report 22167125 (Version 8)
Quarter: 2024Q1

REPORT INFORMATION
  Report Type: Spontaneous
  Country: US (occurrence: US)
  Receive Date: 20230403
  Receipt Date: 20240207
  Transmission Date: 20240410
  Serious: Yes (Hospitalization, Other)
  Sender: FDA-Public Use
  Company Number: US-PFIZER INC-PV202300059603

PATIENT
  Age: 58 Year
  Sex: Female
  Weight: 108.39 kg

DRUGS (18)
  1. XELJANZ XR [Suspect]
     Active Substance: TOFACITINIB CITRATE
     Indication: Rheumatoid arthritis
     Dosage: 11 MG, 1X/DAY [11 MG QD]
     Route: 048
     Dates: start: 202108, end: 20230412
  2. XELJANZ XR [Suspect]
     Active Substance: TOFACITINIB CITRATE
     Indication: Osteoarthritis
     Dosage: 11 MG, 1X/DAY [11 MG QD]
     Route: 048
     Dates: start: 2023
  3. XELJANZ XR [Suspect]
     Active Substance: TOFACITINIB CITRATE
     Indication: Psoriasis
  4. XELJANZ XR [Suspect]
     Active Substance: TOFACITINIB CITRATE
     Indication: Spondylitis
  5. FLUOXETINE HYDROCHLORIDE [Concomitant]
     Active Substance: FLUOXETINE HYDROCHLORIDE
     Indication: Depression
     Dosage: 40 MG, 1X/DAY
     Dates: start: 201708
  6. METOPROLOL TARTRATE [Concomitant]
     Active Substance: METOPROLOL TARTRATE
     Indication: Blood pressure measurement
     Dosage: 25 MG, 2X/DAY
     Dates: start: 201709
  7. PREDNISONE [Concomitant]
     Active Substance: PREDNISONE
     Indication: Rheumatoid arthritis
     Dosage: 10 MG, 1X/DAY
     Dates: start: 202102, end: 202105
  8. PREDNISONE [Concomitant]
     Active Substance: PREDNISONE
     Dosage: UNK
     Dates: start: 2021, end: 202108
  9. VITAMIN D3 [Concomitant]
     Active Substance: CHOLECALCIFEROL
     Dosage: UNK, 2X/DAY, [25 MCG 1000 IV 2X A DAY]
     Route: 042
     Dates: start: 202104, end: 202107
  10. VITAMIN D3 [Concomitant]
     Active Substance: CHOLECALCIFEROL
     Dosage: UNK, 2X/DAY, [D3, 25 MG 1000 MG 2]
     Route: 042
     Dates: start: 202110
  11. HYDROXYCHLOROQUINE [Concomitant]
     Active Substance: HYDROXYCHLOROQUINE
     Indication: Rheumatoid arthritis
     Dosage: 200 MG, 1X/DAY
     Dates: start: 202105, end: 20220629
  12. IRON [Concomitant]
     Active Substance: IRON
     Indication: Anaemia
     Dosage: 65 MG, 3X/DAY
     Dates: start: 202111
  13. IRON [Concomitant]
     Active Substance: IRON
     Dosage: 65 MG, 3X/DAY
     Dates: start: 20220326
  14. ASCORBIC ACID\ZINC [Concomitant]
     Active Substance: ASCORBIC ACID\ZINC
     Dosage: UNK, 1X/DAY
     Dates: start: 202201, end: 2022
  15. ASCORBIC ACID\ZINC [Concomitant]
     Active Substance: ASCORBIC ACID\ZINC
     Dosage: UNK, 1X/DAY
     Dates: start: 202204
  16. LOSARTAN POTASSIUM [Concomitant]
     Active Substance: LOSARTAN POTASSIUM
     Indication: Blood pressure measurement
     Dosage: 100 MG, 1X/DAY
     Dates: start: 20221229
  17. XARELTO [Concomitant]
     Active Substance: RIVAROXABAN
     Indication: Anticoagulant therapy
     Dosage: 10 MG, 1X/DAY
     Dates: end: 202206
  18. XARELTO [Concomitant]
     Active Substance: RIVAROXABAN
     Dosage: 20 MG
     Dates: start: 20230322, end: 20230412

REACTIONS (16)
  - Patella fracture [Not Recovered/Not Resolved]
  - Ankle fracture [Recovered/Resolved]
  - Hip arthroplasty [Recovered/Resolved]
  - Atrial fibrillation [Recovered/Resolved]
  - Haemorrhage [Recovered/Resolved]
  - Knee arthroplasty [Not Recovered/Not Resolved]
  - Ligament sprain [Recovered/Resolved]
  - Rib fracture [Unknown]
  - Disease recurrence [Recovered/Resolved]
  - Rash [Recovered/Resolved]
  - Pruritus [Unknown]
  - Fatigue [Unknown]
  - Scratch [Unknown]
  - Stomatitis [Unknown]
  - Pain [Unknown]
  - Drug hypersensitivity [Unknown]

NARRATIVE: CASE EVENT DATE: 20211029
